FAERS Safety Report 12147471 (Version 1)
Quarter: 2016Q1

REPORT INFORMATION
  Report Type: Spontaneous
  Country: US (occurrence: US)
  Receive Date: 20160304
  Receipt Date: 20160304
  Transmission Date: 20160526
  Serious: No
  Sender: FDA-Public Use
  Company Number: US-BAXALTA-2016BLT001316

PATIENT
  Sex: Male

DRUGS (2)
  1. PRIVIGEN [Concomitant]
     Active Substance: HUMAN IMMUNOGLOBULIN G
     Indication: PRODUCT USED FOR UNKNOWN INDICATION
     Route: 065
  2. GAMMAGARD LIQUID [Suspect]
     Active Substance: HUMAN IMMUNOGLOBULIN G
     Indication: PRODUCT USED FOR UNKNOWN INDICATION
     Dosage: 1000 IU, UNK
     Route: 042
     Dates: start: 201512, end: 201512

REACTIONS (4)
  - Wrong drug administered [Unknown]
  - Slow speech [Unknown]
  - Arterial occlusive disease [Unknown]
  - Muscular weakness [Unknown]

NARRATIVE: CASE EVENT DATE: 201512
